FAERS Safety Report 6029382-4 (Version None)
Quarter: 2009Q1

REPORT INFORMATION
  Report Type: 
  Country: None (occurrence: None)
  Receive Date: 20090105
  Receipt Date: 20081219
  Transmission Date: 20090719
  Serious: Yes (Death, Hospitalization)
  Sender: FDA-Public Use
  Company Number: 2008SP026046

PATIENT
  Age: 60 Year
  Sex: Male
  Weight: 70 kg

DRUGS (4)
  1. TEMODAL [Suspect]
     Indication: GLIOBLASTOMA MULTIFORME
     Dosage: 75 MG/M2;
     Dates: start: 20080325
  2. METOPROLOL TARTRATE [Concomitant]
  3. DEPAKENE [Concomitant]
  4. DEXAMETHASONE [Concomitant]

REACTIONS (3)
  - HYPERSENSITIVITY [None]
  - MYOCARDITIS [None]
  - SHOCK [None]
